FAERS Safety Report 24270465 (Version 3)
Quarter: 2024Q3

REPORT INFORMATION
  Report Type: Report from Study
  Country: US (occurrence: US)
  Receive Date: 20240830
  Receipt Date: 20240925
  Transmission Date: 20241016
  Serious: Yes (Death)
  Sender: ABBVIE
  Company Number: US-ABBVIE-5901364

PATIENT
  Sex: Male

DRUGS (32)
  1. VENCLEXTA [Suspect]
     Active Substance: VENETOCLAX
     Indication: Plasma cell myeloma
     Dosage: STRENGTH 100 MG
     Route: 048
     Dates: end: 20240401
  2. ACTIVASE [Concomitant]
     Active Substance: ALTEPLASE
     Indication: Cardiac disorder
  3. CATHFLO ACTIVASE [Concomitant]
     Active Substance: ALTEPLASE
     Indication: Angiopathy
  4. TNKASE [Concomitant]
     Active Substance: TENECTEPLASE
     Indication: Cardiovascular disorder
  5. PEGINTERFERON ALFA-2A [Concomitant]
     Active Substance: PEGINTERFERON ALFA-2A
     Indication: Infection
  6. PEGASYS [Concomitant]
     Active Substance: PEGINTERFERON ALFA-2A
     Indication: Infection
  7. XOLAIR [Concomitant]
     Active Substance: OMALIZUMAB
     Indication: Inflammation
  8. MABTHERA [Concomitant]
     Active Substance: RITUXIMAB
     Indication: Inflammation
  9. RITUXAN [Concomitant]
     Active Substance: RITUXIMAB
     Indication: Inflammation
  10. ACTEMRA [Concomitant]
     Active Substance: TOCILIZUMAB
     Indication: Inflammation
  11. TOCILIZUMAB [Concomitant]
     Active Substance: TOCILIZUMAB
     Indication: Inflammation
  12. IBANDRONATE SODIUM [Concomitant]
     Active Substance: IBANDRONATE SODIUM
     Indication: Bone metabolism disorder
  13. BONIVA [Concomitant]
     Active Substance: IBANDRONATE SODIUM
     Indication: Bone metabolism disorder
  14. AVASTIN [Concomitant]
     Active Substance: BEVACIZUMAB
     Indication: Neoplasm malignant
  15. XELODA [Concomitant]
     Active Substance: CAPECITABINE
     Indication: Neoplasm malignant
  16. TARCEVA [Concomitant]
     Active Substance: ERLOTINIB HYDROCHLORIDE
     Indication: Neoplasm malignant
  17. PERJETA [Concomitant]
     Active Substance: PERTUZUMAB
     Indication: Neoplasm malignant
  18. MABTHERA [Concomitant]
     Active Substance: RITUXIMAB
     Indication: Neoplasm malignant
  19. HERCEPTIN [Concomitant]
     Active Substance: TRASTUZUMAB
     Indication: Neoplasm malignant
  20. TRASTUZUMAB [Concomitant]
     Active Substance: TRASTUZUMAB
     Indication: Neoplasm malignant
  21. ZELBORAF [Concomitant]
     Active Substance: VEMURAFENIB
     Indication: Neoplasm malignant
  22. ERIVEDGE [Concomitant]
     Active Substance: VISMODEGIB
     Indication: Neoplasm malignant
  23. LUCENTIS [Concomitant]
     Active Substance: RANIBIZUMAB
     Indication: Eye disorder
  24. PULMOZYME [Concomitant]
     Active Substance: DORNASE ALFA
     Indication: Respiratory disorder
  25. CELLCEPT [Concomitant]
     Active Substance: MYCOPHENOLATE MOFETIL
     Indication: Transplant
  26. VALCYTE [Concomitant]
     Active Substance: VALGANCICLOVIR HYDROCHLORIDE
     Indication: Transplant
  27. FUZEON [Concomitant]
     Active Substance: ENFUVIRTIDE
     Indication: Viral infection
  28. PENTAFUSIDE [Concomitant]
     Indication: Viral infection
  29. COPEGUS [Concomitant]
     Active Substance: RIBAVIRIN
     Indication: Viral infection
  30. RIBAVIRIN [Concomitant]
     Active Substance: RIBAVIRIN
     Indication: Viral infection
  31. FORTOVASE [Concomitant]
     Active Substance: SAQUINAVIR
     Indication: Viral infection
  32. INVIRASE [Concomitant]
     Active Substance: SAQUINAVIR MESYLATE
     Indication: Viral infection

REACTIONS (2)
  - Death [Fatal]
  - Therapeutic product effect decreased [Unknown]

NARRATIVE: CASE EVENT DATE: 20240101
